FAERS Safety Report 5812465-9 (Version None)
Quarter: 2008Q3

REPORT INFORMATION
  Report Type: 
  Country: None (occurrence: None)
  Receive Date: 20080716
  Receipt Date: 20080716
  Transmission Date: 20090109
  Serious: Yes (Life-Threatening, Hospitalization)
  Sender: FDA-Public Use
  Company Number: None

PATIENT
  Age: 79 Year
  Sex: Male
  Weight: 81.6475 kg

DRUGS (1)
  1. DIGITEX 0.25MG [Suspect]
     Indication: MENTAL DISORDER
     Dosage: 0.25 MG 1 DAILY
     Dates: start: 20071008, end: 20071119

REACTIONS (3)
  - CONFUSIONAL STATE [None]
  - DEMENTIA [None]
  - PARANOIA [None]
